FAERS Safety Report 6661515-9 (Version None)
Quarter: 2010Q1

REPORT INFORMATION
  Report Type: 
  Country: None (occurrence: None)
  Receive Date: 20100331
  Receipt Date: 20100326
  Transmission Date: 20100710
  Serious: Yes (Hospitalization)
  Sender: FDA-Public Use
  Company Number: FR-BRISTOL-MYERS SQUIBB COMPANY-14984801

PATIENT
  Age: 30 Year
  Sex: Female

DRUGS (5)
  1. REYATAZ [Suspect]
     Indication: HIV INFECTION
     Dosage: FOR 10 DAYS.
     Route: 048
     Dates: start: 20100114, end: 20100123
  2. NORVIR [Suspect]
     Indication: HIV INFECTION
     Dates: start: 20100114, end: 20100123
  3. KIVEXA [Suspect]
     Indication: HIV INFECTION
     Dates: start: 20100114, end: 20100123
  4. BACTRIM [Suspect]
     Indication: PNEUMOCYSTIS JIROVECI INFECTION
     Dosage: FOR 33 DAYS.
     Dates: start: 20091222, end: 20100123
  5. DEROXAT [Concomitant]
     Dates: start: 20100107, end: 20100118

REACTIONS (2)
  - DRUG RASH WITH EOSINOPHILIA AND SYSTEMIC SYMPTOMS [None]
  - HERPES SIMPLEX [None]
